FAERS Safety Report 8524429-5 (Version None)
Quarter: 2012Q3

REPORT INFORMATION
  Report Type: 
  Country: None (occurrence: None)
  Receive Date: 20120716
  Receipt Date: 20120716
  Transmission Date: 20120928
  Serious: Yes (Hospitalization)
  Sender: FDA-Public Use
  Company Number: None

PATIENT
  Sex: Male
  Weight: 27.7 kg

DRUGS (5)
  1. DEXAMETHASONE [Suspect]
     Dosage: 78 MG
  2. METHOTREXATE [Suspect]
     Dosage: 15 MG
  3. PEG-L-ASPARAGINASE (PEGASPARGASE, ONCOSPAR) 2500 IU [Suspect]
     Dosage: 2500IU
  4. CYTARABINE [Suspect]
     Dosage: 70 MG
  5. VINCRISTINE [Suspect]
     Dosage: 3 MG

REACTIONS (8)
  - SEPTIC SHOCK [None]
  - RESPIRATORY DISTRESS [None]
  - HYPOTENSION [None]
  - PULSELESS ELECTRICAL ACTIVITY [None]
  - PULMONARY OEDEMA [None]
  - OXYGEN SATURATION DECREASED [None]
  - TACHYCARDIA [None]
  - HEART RATE DECREASED [None]
